FAERS Safety Report 7791951-9 (Version None)
Quarter: 2011Q4

REPORT INFORMATION
  Report Type: 
  Country: None (occurrence: None)
  Receive Date: 20111003
  Receipt Date: 20110928
  Transmission Date: 20120403
  Serious: Yes (Life-Threatening, Hospitalization)
  Sender: FDA-Public Use
  Company Number: FR-PFIZER INC-2011230681

PATIENT
  Age: 53 Year
  Sex: Male

DRUGS (17)
  1. HEPARIN [Concomitant]
     Indication: ANTICOAGULANT THERAPY
     Dosage: 8000 IU/48CCV4
     Route: 042
     Dates: start: 20101201
  2. NEXIUM [Concomitant]
     Indication: PROPHYLAXIS
     Dosage: 40 MG, 1X/DAY
     Route: 048
     Dates: start: 20101220, end: 20110113
  3. ALDACTONE [Suspect]
     Indication: CARDIAC FAILURE CONGESTIVE
     Dosage: 50 MG, 1X/DAY
     Route: 048
     Dates: start: 20101229, end: 20110113
  4. NICARDIPINE HCL [Suspect]
     Indication: HYPERTENSION
     Dosage: 50 MG, 1X/DAY
     Route: 048
     Dates: start: 20101224, end: 20110124
  5. XANAX [Suspect]
     Indication: ANXIETY
     Dosage: 0.50 MG, 1X/DAY
     Route: 048
     Dates: start: 20101201, end: 20110113
  6. COROTROPE [Concomitant]
     Indication: CARDIAC FAILURE
     Dosage: 10MG/10ML
     Route: 041
     Dates: start: 20101201, end: 20110203
  7. PERINDOPRIL ERBUMINE [Suspect]
     Indication: CARDIAC FAILURE
     Dosage: 5 MG, 1X/DAY
     Route: 048
     Dates: start: 20101225, end: 20110124
  8. ZYRTEC [Concomitant]
     Indication: PROPHYLAXIS
     Dosage: 10 MG, 1X/DAY
     Route: 048
     Dates: start: 20110118, end: 20110129
  9. LYRICA [Concomitant]
     Indication: PAIN
     Dosage: 300 MG, 1X/DAY
     Route: 048
     Dates: start: 20101230, end: 20110113
  10. RIFADIN [Concomitant]
     Indication: INFECTION
     Dosage: 600 MG, 1 DF TWICE A DAY
     Route: 041
     Dates: start: 20101217, end: 20110117
  11. PREVISCAN [Concomitant]
     Indication: ANTICOAGULANT THERAPY
     Dosage: 20 MG, UNK
     Route: 048
     Dates: start: 20110113, end: 20110124
  12. LASIX [Concomitant]
     Indication: CARDIAC FAILURE
     Dosage: UNK
     Route: 042
     Dates: start: 20101203, end: 20101228
  13. VANCOMYCIN HCL [Suspect]
     Indication: INFECTION
     Dosage: 2 G, 1X/DAY
     Route: 042
     Dates: start: 20101217, end: 20110116
  14. OXYCODONE HCL [Suspect]
     Indication: PAIN
     Dosage: UNK
     Route: 041
     Dates: start: 20101219, end: 20110112
  15. FLUCONAZOLE [Suspect]
     Indication: PROPHYLAXIS
     Dosage: 2 MG/ML, 2X/DAY
     Route: 042
     Dates: start: 20101218, end: 20110112
  16. REVATIO [Concomitant]
     Indication: HYPERTENSION
     Dosage: 60 MG, 1X/DAY
     Route: 048
     Dates: start: 20101206, end: 20110217
  17. LASIX [Concomitant]
     Dosage: UNK
     Route: 048
     Dates: start: 20101229, end: 20110113

REACTIONS (1)
  - DRUG RASH WITH EOSINOPHILIA AND SYSTEMIC SYMPTOMS [None]
